FAERS Safety Report 9847211 (Version 1)
Quarter: 2014Q1

REPORT INFORMATION
  Report Type: Spontaneous
  Country: US (occurrence: US)
  Receive Date: 20140127
  Receipt Date: 20140127
  Transmission Date: 20141002
  Serious: Yes (Other)
  Sender: FDA-Public Use
  Company Number: US-PFIZER INC-2014024270

PATIENT
  Sex: 0

DRUGS (2)
  1. PRISTIQ [Suspect]
     Dosage: 100 MG, UNK
  2. PRISTIQ [Suspect]
     Dosage: TITRATE DOWN FROM 100MG

REACTIONS (7)
  - Abasia [Unknown]
  - Speech disorder [Unknown]
  - Narcolepsy [Unknown]
  - Asthenia [Unknown]
  - Somnolence [Unknown]
  - Activities of daily living impaired [Unknown]
  - Feeling drunk [Unknown]
